FAERS Safety Report 15944817 (Version 1)
Quarter: 2019Q1

REPORT INFORMATION
  Report Type: Spontaneous
  Country: US (occurrence: US)
  Receive Date: 20190212
  Receipt Date: 20190212
  Transmission Date: 20190417
  Serious: Yes (Other)
  Sender: FDA-Public Use
  Company Number: None

PATIENT
  Age: 31 Year
  Sex: Male
  Weight: .04 kg

DRUGS (1)
  1. ZENZEDI [Suspect]
     Active Substance: DEXTROAMPHETAMINE SULFATE
     Indication: ATTENTION DEFICIT/HYPERACTIVITY DISORDER
     Dosage: ?          QUANTITY:1 TABLET(S);OTHER FREQUENCY:FIVE TIMES A DAY;?
     Route: 048
     Dates: start: 20190113, end: 20190114

REACTIONS (10)
  - Product counterfeit [None]
  - Product solubility abnormal [None]
  - Heart rate decreased [None]
  - Product physical consistency issue [None]
  - Hypoaesthesia [None]
  - Balance disorder [None]
  - Dry eye [None]
  - Coordination abnormal [None]
  - Eye irritation [None]
  - Paraesthesia [None]

NARRATIVE: CASE EVENT DATE: 20190113
